FAERS Safety Report 18251263 (Version 2)
Quarter: 2020Q3

REPORT INFORMATION
  Report Type: Spontaneous
  Country: RU (occurrence: RU)
  Receive Date: 20200910
  Receipt Date: 20200922
  Transmission Date: 20201103
  Serious: Yes (Other)
  Sender: FDA-Public Use
  Company Number: RU-ABBVIE-20K-251-3559890-00

PATIENT
  Age: 56 Year
  Sex: Male
  Weight: 61 kg

DRUGS (3)
  1. DIZAVEROX [Concomitant]
     Active Substance: LAMIVUDINE\ZIDOVUDINE
     Indication: HIV INFECTION
     Dosage: 0.15+0.3 (UNITS ? NOT REPORTED)
     Route: 048
     Dates: start: 20200508, end: 20200605
  2. DIZAVEROX [Concomitant]
     Active Substance: LAMIVUDINE\ZIDOVUDINE
     Dosage: 0.15+0.3 (UNITS ? NOT REPORTED)
     Route: 048
     Dates: start: 20200605, end: 20200703
  3. LOPINAVIR/RITONAVIR [Suspect]
     Active Substance: LOPINAVIR\RITONAVIR
     Indication: HIV INFECTION
     Dosage: 0.2+0.05 (2 TABLETS)
     Route: 048
     Dates: start: 20200508, end: 20200708

REACTIONS (2)
  - Diarrhoea [Recovered/Resolved]
  - Performance status decreased [Recovered/Resolved]

NARRATIVE: CASE EVENT DATE: 202006
